FAERS Safety Report 10726194 (Version 2)
Quarter: 2015Q1

REPORT INFORMATION
  Report Type: Report from Study
  Country: US (occurrence: US)
  Receive Date: 20150121
  Receipt Date: 20150219
  Transmission Date: 20150721
  Serious: Yes (Hospitalization, Disabling, Other)
  Sender: FDA-Public Use
  Company Number: US-SA-2015SA005271

PATIENT
  Age: 8 Year
  Sex: Male
  Weight: 23.9 kg

DRUGS (45)
  1. DEXTROSE INFUSION FLUID 5% [Concomitant]
     Route: 042
     Dates: start: 20140722
  2. LACTATED RINGER^S INJECTION [Concomitant]
     Dosage: DOSE: 70ML/HR
     Route: 042
     Dates: start: 20141121
  3. DEXAMETHASONE/TOBRAMYCIN [Concomitant]
     Dosage: 3 DROPS IN AFFECTED EAR
  4. LIDOCAINE. [Concomitant]
     Active Substance: LIDOCAINE
     Route: 061
     Dates: start: 20140722
  5. PANTOPRAZOLE [Concomitant]
     Active Substance: PANTOPRAZOLE SODIUM
  6. IMMUNOGLOBULIN [Concomitant]
     Active Substance: HUMAN IMMUNOGLOBULIN G
     Route: 042
     Dates: end: 201306
  7. CALCIUM CARBONATE. [Concomitant]
     Active Substance: CALCIUM CARBONATE
     Dosage: 70MG=0.7ML G-TUBE
     Dates: start: 20140520
  8. METHYLPREDNISOLONE. [Concomitant]
     Active Substance: METHYLPREDNISOLONE
     Dosage: 20MG=0.5ML
     Route: 042
     Dates: start: 20140530
  9. METHYLPREDNISOLONE. [Concomitant]
     Active Substance: METHYLPREDNISOLONE
     Dosage: 20MG=0.5ML
     Route: 042
     Dates: start: 20140804
  10. ACETAMINOPHEN. [Concomitant]
     Active Substance: ACETAMINOPHEN
     Indication: PREMEDICATION
     Route: 048
     Dates: start: 20140804
  11. DIPHENHYDRAMINE [Concomitant]
     Active Substance: DIPHENHYDRAMINE
     Indication: PRURITUS
     Dosage: 12.5=5ML J-TUBE Q4H PRN
     Route: 042
     Dates: start: 20140520
  12. EPINEPHRINE. [Concomitant]
     Active Substance: EPINEPHRINE
     Indication: HYPERSENSITIVITY
     Route: 030
  13. MUPIROCIN. [Concomitant]
     Active Substance: MUPIROCIN
     Route: 061
  14. ZOFRAN [Concomitant]
     Active Substance: ONDANSETRON HYDROCHLORIDE
     Indication: NAUSEA
     Route: 042
     Dates: start: 20140531
  15. METHOTREXATE [Concomitant]
     Active Substance: METHOTREXATE
     Indication: IMMUNOMODULATORY THERAPY
  16. BUDESONIDE. [Concomitant]
     Active Substance: BUDESONIDE
     Dosage: 0.5MG=2ML
     Route: 055
     Dates: start: 20140528
  17. DIPHENHYDRAMINE [Concomitant]
     Active Substance: DIPHENHYDRAMINE
     Indication: PREMEDICATION
     Dosage: 12.5=5ML J-TUBE Q4H PRN
     Route: 042
     Dates: start: 20140520
  18. HEPARIN LOCK FLUSH [Concomitant]
     Active Substance: HEPARIN SODIUM
     Route: 042
     Dates: start: 20140602
  19. HYDROCORTISONE. [Concomitant]
     Active Substance: HYDROCORTISONE
     Indication: PREMEDICATION
     Route: 061
     Dates: start: 20140528
  20. METHYLPREDNISOLONE. [Concomitant]
     Active Substance: METHYLPREDNISOLONE
     Dosage: 40 MG=1ML
     Route: 042
     Dates: start: 20140804
  21. TRIMETHOPRIM/SULFAMETHOXAZOLE [Concomitant]
     Dosage: 13 ML, 260 ML ,0 REFILLS
     Route: 048
  22. IMMUNOGLOBULIN [Concomitant]
     Active Substance: HUMAN IMMUNOGLOBULIN G
     Dates: start: 201407
  23. ALTEPLASE [Concomitant]
     Active Substance: ALTEPLASE
     Dosage: 1MG=1ML
     Route: 042
     Dates: start: 20140722
  24. DIPHENHYDRAMINE [Concomitant]
     Active Substance: DIPHENHYDRAMINE
     Indication: URTICARIA
     Dosage: 12.5=5ML J-TUBE Q4H PRN
     Route: 042
     Dates: start: 20140520
  25. MUPIROCIN. [Concomitant]
     Active Substance: MUPIROCIN
     Dosage: 2%
     Route: 061
     Dates: start: 20140528
  26. PREDNISOLONE. [Concomitant]
     Active Substance: PREDNISOLONE
     Indication: ASTHMA
  27. ACETAMINOPHEN. [Concomitant]
     Active Substance: ACETAMINOPHEN
     Indication: PREMEDICATION
     Route: 048
     Dates: start: 20140722
  28. ACETAMINOPHEN. [Concomitant]
     Active Substance: ACETAMINOPHEN
     Indication: PREMEDICATION
     Dates: start: 20140530
  29. ALTEPLASE [Concomitant]
     Active Substance: ALTEPLASE
     Dosage: 1MG=1ML
     Route: 042
     Dates: start: 20140527
  30. ERGOCALCIFEROL. [Concomitant]
     Active Substance: ERGOCALCIFEROL
     Dosage: 1600 UNITS=0.2 ML J-TUBE
     Dates: start: 20140528
  31. LIDOCAINE/PRILOCAINE [Concomitant]
     Route: 061
     Dates: start: 20140722
  32. NYSTATIN. [Concomitant]
     Active Substance: NYSTATIN
     Indication: DERMATITIS DIAPER
     Route: 061
  33. NORMAL SALINE [Concomitant]
     Active Substance: SODIUM CHLORIDE
     Route: 042
     Dates: start: 20140527
  34. POLYMYXIN B/BACITRACIN [Concomitant]
     Dosage: 500UNITS-10,000UNITS
     Route: 061
     Dates: start: 20140528
  35. IBUPROFEN. [Concomitant]
     Active Substance: IBUPROFEN
     Indication: PAIN
     Dates: start: 20140528
  36. LACTOBACILLUS ACIDOPHILUS [Concomitant]
     Active Substance: LACTOBACILLUS ACIDOPHILUS
     Indication: DIARRHOEA
     Route: 048
  37. XOPENEX [Concomitant]
     Active Substance: LEVALBUTEROL HYDROCHLORIDE
     Route: 055
     Dates: start: 20140528
  38. ZOFRAN [Concomitant]
     Active Substance: ONDANSETRON HYDROCHLORIDE
     Indication: VOMITING
     Route: 042
     Dates: start: 20140531
  39. RITUXIMAB [Concomitant]
     Active Substance: RITUXIMAB
     Indication: IMMUNOMODULATORY THERAPY
  40. LUMIZYME [Suspect]
     Active Substance: ALGLUCOSIDASE ALFA
     Indication: GLYCOGEN STORAGE DISEASE TYPE II
     Route: 042
     Dates: start: 20120416, end: 20140414
  41. CIPROFLOXACIN/DEXAMETHASONE [Concomitant]
     Dosage: 3 DROPS IN INFECTED EAR
  42. FERROUS SULFATE [Concomitant]
     Active Substance: FERROUS SULFATE\FERROUS SULFATE, DRIED
     Indication: BLOOD IRON
     Dates: start: 20140528
  43. HYDROCORTISONE. [Concomitant]
     Active Substance: HYDROCORTISONE
     Indication: PREMEDICATION
     Route: 042
     Dates: start: 20140530
  44. IBUPROFEN. [Concomitant]
     Active Substance: IBUPROFEN
     Indication: PYREXIA
     Dates: start: 20140528
  45. SODIUM CHLORIDE. [Concomitant]
     Active Substance: SODIUM CHLORIDE
     Route: 042
     Dates: start: 20140530

REACTIONS (7)
  - Deafness bilateral [Unknown]
  - Precocious puberty [Unknown]
  - Nuclear magnetic resonance imaging brain abnormal [Not Recovered/Not Resolved]
  - Tracheobronchitis [Unknown]
  - Pneumonia [Unknown]
  - General physical health deterioration [Unknown]
  - Joint contracture [Unknown]
